FAERS Safety Report 7308978-3 (Version None)
Quarter: 2011Q1

REPORT INFORMATION
  Report Type: 
  Country: None (occurrence: None)
  Receive Date: 20110223
  Receipt Date: 20101227
  Transmission Date: 20110831
  Serious: Yes (Hospitalization, Other)
  Sender: FDA-Public Use
  Company Number: US-BAYER-201030063NA

PATIENT
  Sex: Female
  Weight: 70.295 kg

DRUGS (2)
  1. YAZ [Suspect]
     Route: 048
     Dates: start: 20070101, end: 20071015
  2. YASMIN [Suspect]
     Indication: CYST
     Dosage: UNK
     Route: 048
     Dates: start: 20061101, end: 20071001

REACTIONS (5)
  - PULMONARY EMBOLISM [None]
  - THROMBOSIS [None]
  - DYSPNOEA [None]
  - CHEST PAIN [None]
  - PULMONARY CONGESTION [None]
